FAERS Safety Report 17901180 (Version 1)
Quarter: 2020Q2

REPORT INFORMATION
  Report Type: Spontaneous
  Country: CA (occurrence: CA)
  Receive Date: 20200616
  Receipt Date: 20200616
  Transmission Date: 20200714
  Serious: Yes (Other)
  Sender: FDA-Public Use
  Company Number: CA-PFIZER INC-2020232475

PATIENT
  Sex: Female

DRUGS (4)
  1. METHOTREXATE SODIUM. [Suspect]
     Active Substance: METHOTREXATE SODIUM
     Dosage: UNK
     Route: 065
  2. SULFASALAZINE. [Suspect]
     Active Substance: SULFASALAZINE
     Dosage: UNK
     Route: 065
  3. ARAVA [Suspect]
     Active Substance: LEFLUNOMIDE
     Dosage: UNK
     Route: 065
  4. HYDROXYCHLOROQUINE SULPHATE [Suspect]
     Active Substance: HYDROXYCHLOROQUINE
     Dosage: UNK
     Route: 065

REACTIONS (6)
  - Abdominal discomfort [Unknown]
  - Lung disorder [Unknown]
  - Macular degeneration [Unknown]
  - Drug intolerance [Unknown]
  - Eye disorder [Unknown]
  - Contraindicated product administered [Unknown]
